FAERS Safety Report 6261364-X (Version None)
Quarter: 2009Q3

REPORT INFORMATION
  Report Type: 
  Country: None (occurrence: None)
  Receive Date: 20090709
  Receipt Date: 20090702
  Transmission Date: 20100115
  Serious: Yes (Other)
  Sender: FDA-Public Use
  Company Number: US-PFIZER INC-2009201531

PATIENT
  Sex: Male
  Weight: 77.6 kg

DRUGS (14)
  1. SUTENT [Suspect]
     Indication: RENAL CELL CARCINOMA
     Dosage: 37.5 MG, 1X/DAY
     Route: 048
     Dates: start: 20090410
  2. MECLIZINE [Concomitant]
     Dosage: UNK
  3. DIPHENHYDRAMINE [Concomitant]
     Dosage: UNK
  4. TOPROL-XL [Concomitant]
     Dosage: UNK
  5. NIASPAN [Concomitant]
     Dosage: UNK
  6. HYDROCHLOROTHIAZIDE [Concomitant]
     Dosage: UNK
  7. NEXIUM [Concomitant]
     Dosage: UNK
  8. PLAVIX [Concomitant]
  9. CRESTOR [Concomitant]
     Dosage: UNK
  10. FOLIC ACID [Concomitant]
     Dosage: UNK
  11. UROXATRAL [Concomitant]
     Dosage: UNK
  12. ADVAIR HFA [Concomitant]
     Dosage: UNK
  13. SPIRIVA [Concomitant]
     Dosage: UNK
  14. ACETYLSALICYLIC ACID [Concomitant]
     Dosage: UNK

REACTIONS (4)
  - GINGIVAL DISCOLOURATION [None]
  - GINGIVAL PAIN [None]
  - GINGIVAL RECESSION [None]
  - TOOTH LOSS [None]
